FAERS Safety Report 23020394 (Version 1)
Quarter: 2023Q4

REPORT INFORMATION
  Report Type: Spontaneous
  Country: CN (occurrence: CN)
  Receive Date: 20231003
  Receipt Date: 20231003
  Transmission Date: 20240110
  Serious: Yes (Other)
  Sender: FDA-Public Use
  Company Number: CN-SA-SAC20230928000231

PATIENT

DRUGS (2)
  1. INSULIN GLARGINE [Suspect]
     Active Substance: INSULIN GLARGINE
     Dosage: 300 U
  2. INSULIN ASPART [Suspect]
     Active Substance: INSULIN ASPART
     Dosage: 300 U

REACTIONS (2)
  - Suicide attempt [Unknown]
  - Intentional overdose [Unknown]
